FAERS Safety Report 5040973-X (Version None)
Quarter: 2006Q2

REPORT INFORMATION
  Report Type: 
  Country: None (occurrence: None)
  Receive Date: 20060629
  Receipt Date: 20060629
  Transmission Date: 20061013
  Serious: Yes (Hospitalization, Other)
  Sender: FDA-Public Use
  Company Number: None

PATIENT
  Sex: Female
  Weight: 72.5755 kg

DRUGS (2)
  1. VIOXX [Suspect]
     Indication: ARTHRITIS
  2. VIOXX [Suspect]
     Indication: FOOT FRACTURE

REACTIONS (1)
  - HEPATIC ENZYME INCREASED [None]
